FAERS Safety Report 8089584-2 (Version None)
Quarter: 2012Q1

REPORT INFORMATION
  Report Type: 
  Country: None (occurrence: None)
  Receive Date: 20120128
  Receipt Date: 20110707
  Transmission Date: 20120608
  Serious: No
  Sender: FDA-Public Use
  Company Number: US-ABBOTT-11P-163-0837743-00

PATIENT
  Sex: Male

DRUGS (2)
  1. HUMIRA [Suspect]
     Indication: ANKYLOSING SPONDYLITIS
     Dosage: DOSE NOT REPORTED
     Dates: start: 20110619
  2. UNKNOWN INHALER [Concomitant]
     Indication: ASTHMA EXERCISE INDUCED
     Dosage: UNREPORTED DOSE - AS NEEDED

REACTIONS (10)
  - VISUAL ACUITY REDUCED [None]
  - MYOSITIS [None]
  - PAIN IN EXTREMITY [None]
  - TENDONITIS [None]
  - INJECTION SITE PAIN [None]
  - INJECTION SITE SWELLING [None]
  - INJECTION SITE ERYTHEMA [None]
  - MUSCULOSKELETAL PAIN [None]
  - IMMUNE SYSTEM DISORDER [None]
  - MYALGIA [None]
